FAERS Safety Report 8035955-X (Version None)
Quarter: 2012Q1

REPORT INFORMATION
  Report Type: 
  Country: None (occurrence: None)
  Receive Date: 20120111
  Receipt Date: 20111228
  Transmission Date: 20120608
  Serious: Yes (Death)
  Sender: FDA-Public Use
  Company Number: US-UCBSA-049174

PATIENT
  Age: 82 Year
  Sex: Male

DRUGS (7)
  1. HYDROXYCHLOROQUINE SULFATE [Suspect]
     Route: 048
  2. AMLODIPINE [Suspect]
     Route: 048
  3. PREGABALIN [Suspect]
     Route: 048
  4. ACETAMINOPHEN AND HYDROCODONE BITARTRATE [Suspect]
     Route: 048
  5. CYCLOBENZAPRINE [Suspect]
     Route: 048
  6. WARFARIN SODIUM [Suspect]
     Route: 048
  7. METHADONE HCL [Suspect]
     Route: 048

REACTIONS (1)
  - COMPLETED SUICIDE [None]
